FAERS Safety Report 10300022 (Version 3)
Quarter: 2014Q3

REPORT INFORMATION
  Report Type: Spontaneous
  Country: US (occurrence: US)
  Receive Date: 20140711
  Receipt Date: 20140822
  Transmission Date: 20150326
  Serious: Yes (Hospitalization)
  Sender: FDA-Public Use
  Company Number: US-GLAXOSMITHKLINE-A0912509A

PATIENT
  Age: 75 Year
  Sex: Male

DRUGS (7)
  1. ADVAIR HFA [Suspect]
     Active Substance: FLUTICASONE PROPIONATE\SALMETEROL XINAFOATE
     Indication: CHRONIC OBSTRUCTIVE PULMONARY DISEASE
     Dosage: 1PUFF TWICE PER DAY
     Route: 055
     Dates: start: 201005
  2. COZAAR [Concomitant]
     Active Substance: LOSARTAN POTASSIUM
  3. SPIRIVA [Concomitant]
     Active Substance: TIOTROPIUM BROMIDE MONOHYDRATE
  4. FLOMAX [Concomitant]
     Active Substance: TAMSULOSIN HYDROCHLORIDE
  5. ISOSORBIDE [Concomitant]
     Active Substance: ISOSORBIDE
  6. INSULIN [Concomitant]
     Active Substance: INSULIN NOS
  7. SIMVASTATIN. [Concomitant]
     Active Substance: SIMVASTATIN

REACTIONS (4)
  - Dysphonia [Unknown]
  - Pneumonia staphylococcal [Not Recovered/Not Resolved]
  - Malaise [Unknown]
  - Pneumothorax [Unknown]

NARRATIVE: CASE EVENT DATE: 201005
